FAERS Safety Report 6317622-3 (Version None)
Quarter: 2009Q3

REPORT INFORMATION
  Report Type: 
  Country: None (occurrence: None)
  Receive Date: 20090821
  Receipt Date: 20090817
  Transmission Date: 20100115
  Serious: Yes (Hospitalization)
  Sender: FDA-Public Use
  Company Number: FR-BRISTOL-MYERS SQUIBB COMPANY-14746390

PATIENT
  Age: 74 Year
  Sex: Male

DRUGS (6)
  1. COAPROVEL FILM-COATED TABS 300/12.5 MG [Suspect]
     Indication: HYPERTENSION
     Dosage: 1DF=1 TAB
     Route: 048
     Dates: end: 20090721
  2. HYPERIUM [Concomitant]
     Indication: HYPERTENSION
     Dosage: FORMULATION:TABS
     Route: 048
  3. PLAVIX [Concomitant]
     Indication: ARTERIOSCLEROSIS OBLITERANS
     Route: 048
  4. PRAXILENE [Concomitant]
     Indication: ARTERIOSCLEROSIS OBLITERANS
     Dosage: FORMULATION:TABS
     Route: 048
  5. NORSET [Concomitant]
     Indication: DEPRESSION
     Dosage: FORMULATION:TABS
     Route: 048
  6. PROSCAR [Concomitant]
     Indication: PROSTATIC ADENOMA
     Dosage: FORMULATION:TABS
     Route: 048

REACTIONS (3)
  - DEHYDRATION [None]
  - GENERAL PHYSICAL HEALTH DETERIORATION [None]
  - RENAL FAILURE [None]
